FAERS Safety Report 4524813-0 (Version None)
Quarter: 2004Q4

REPORT INFORMATION
  Report Type: 
  Country: None (occurrence: None)
  Receive Date: 20041209
  Receipt Date: 20041209
  Transmission Date: 20050328
  Serious: Yes (Hospitalization)
  Sender: FDA-Public Use
  Company Number: None

PATIENT
  Age: 55 Year
  Sex: Male
  Weight: 118 kg

DRUGS (11)
  1. COMTAN [Suspect]
     Indication: PARKINSON'S DISEASE
     Dosage: 200 MG 5 TIMES DAILY ORAL
     Route: 048
     Dates: start: 20040601, end: 20040703
  2. WARFARIN SODIUM [Concomitant]
  3. SINEMET [Concomitant]
  4. . [Concomitant]
  5. . [Concomitant]
  6. AMANTADINE SYMMETREL [Concomitant]
  7. . [Concomitant]
  8. REQUIP [Concomitant]
  9. . [Concomitant]
  10. NEURONTIN [Concomitant]
  11. HYDROCODONE [Concomitant]

REACTIONS (2)
  - FALL [None]
  - RHABDOMYOLYSIS [None]
